FAERS Safety Report 10844283 (Version 1)
Quarter: 2015Q1

REPORT INFORMATION
  Report Type: Spontaneous
  Country: ES (occurrence: ES)
  Receive Date: 20150220
  Receipt Date: 20150220
  Transmission Date: 20150721
  Serious: Yes (Life-Threatening)
  Sender: FDA-Public Use
  Company Number: ES-PFIZER INC-2015061473

PATIENT
  Age: 21 Year
  Sex: Male

DRUGS (5)
  1. PARACETAMOL [Concomitant]
     Active Substance: ACETAMINOPHEN
     Indication: PAIN
     Dosage: 1 G, 3X/DAY
     Route: 042
     Dates: start: 20140820
  2. METAMIZOLE [Suspect]
     Active Substance: METAMIZOLE
     Indication: PAIN
     Dosage: 2 G, 4X/DAY
     Route: 042
     Dates: start: 20140820, end: 20140915
  3. MEROPENEM. [Suspect]
     Active Substance: MEROPENEM
     Indication: INFECTION
     Dosage: 2 G, 4X/DAY
     Route: 042
     Dates: start: 20140911, end: 20140915
  4. TAZOCEL [Suspect]
     Active Substance: PIPERACILLIN SODIUM\TAZOBACTAM SODIUM
     Indication: INFECTION
     Dosage: 4 G, 4X/DAY
     Route: 042
     Dates: start: 20140828, end: 20140911
  5. FLUCONAZOLE. [Suspect]
     Active Substance: FLUCONAZOLE
     Indication: INFECTION
     Dosage: 400 MG, 1X/DAY
     Route: 042
     Dates: start: 20140911, end: 20140916

REACTIONS (1)
  - Drug reaction with eosinophilia and systemic symptoms [Recovered/Resolved]

NARRATIVE: CASE EVENT DATE: 20140913
